FAERS Safety Report 4775479-6 (Version None)
Quarter: 2005Q3

REPORT INFORMATION
  Report Type: 
  Country: None (occurrence: None)
  Receive Date: 20050921
  Receipt Date: 20050921
  Transmission Date: 20060218
  Serious: No
  Sender: FDA-Public Use
  Company Number: None

PATIENT

DRUGS (2)
  1. LORAZEPAM [Suspect]
  2. ALPRAZOLAM [Suspect]

REACTIONS (2)
  - DRUG DISPENSING ERROR [None]
  - WRONG DRUG ADMINISTERED [None]
